FAERS Safety Report 13069560 (Version 1)
Quarter: 2016Q4

REPORT INFORMATION
  Report Type: Spontaneous
  Country: CN (occurrence: CN)
  Receive Date: 20161228
  Receipt Date: 20161228
  Transmission Date: 20170207
  Serious: Yes (Hospitalization, Other)
  Sender: FDA-Public Use
  Company Number: CN-GLAXOSMITHKLINE-CN2016GSK189713

PATIENT
  Age: 80 Year
  Sex: Male

DRUGS (9)
  1. AMINOPHYLLINE. [Concomitant]
     Active Substance: AMINOPHYLLINE
  2. AMBROXOL [Concomitant]
     Active Substance: AMBROXOL
  3. WARFARIN [Interacting]
     Active Substance: WARFARIN
  4. BENZBROMARONE [Interacting]
     Active Substance: BENZBROMARONE
  5. VOLTAREN [Suspect]
     Active Substance: DICLOFENAC SODIUM
     Dosage: 125 MG
  6. ASPIRIN. [Concomitant]
     Active Substance: ASPIRIN
  7. PIPERACILLIN SODIUM + TAZOBACTAM SODIUM [Concomitant]
  8. HEPARIN CALCIUM [Concomitant]
     Active Substance: HEPARIN CALCIUM
  9. CELECOXIB. [Concomitant]
     Active Substance: CELECOXIB

REACTIONS (13)
  - Drug interaction [Unknown]
  - Melaena [Recovering/Resolving]
  - Cough [Unknown]
  - Productive cough [Unknown]
  - International normalised ratio increased [Recovered/Resolved]
  - Dizziness [Recovering/Resolving]
  - Oedema peripheral [Unknown]
  - Gastric haemorrhage [Unknown]
  - Overdose [Unknown]
  - Pulmonary artery thrombosis [Unknown]
  - Prothrombin time prolonged [Unknown]
  - Palpitations [Recovering/Resolving]
  - Wheezing [Unknown]
